FAERS Safety Report 8884374 (Version 1)
Quarter: 2012Q4

REPORT INFORMATION
  Report Type: Report from Study
  Country: SE (occurrence: SE)
  Receive Date: 20121102
  Receipt Date: 20121102
  Transmission Date: 20130627
  Serious: Yes (Hospitalization)
  Sender: FDA-Public Use
  Company Number: SE-009507513-1210SWE013990

PATIENT
  Age: 93 Year
  Sex: Male
  Weight: 67 kg

DRUGS (15)
  1. EZETIMIBE (+) SIMVASTATIN [Suspect]
     Indication: ACUTE CORONARY SYNDROME
     Dosage: 10/40 UNK
     Route: 048
     Dates: start: 20061216
  2. MACROGOL HEXAL [Concomitant]
     Dosage: UNK
     Route: 048
     Dates: start: 20091124
  3. KALCIPOS D [Concomitant]
     Dosage: 500 mg, qd
     Route: 048
     Dates: start: 20100614
  4. FUROSEMIDE [Concomitant]
     Dosage: 40 mg, qd
     Route: 048
     Dates: start: 20050903
  5. ISOSORBIDE MONONITRATE [Concomitant]
     Dosage: 120 mg, qd
     Route: 048
     Dates: start: 20050903
  6. ACETAMINOPHEN [Concomitant]
     Dosage: 4 g, qd
     Route: 048
     Dates: start: 20100612
  7. LEVOTHYROXINE SODIUM [Concomitant]
     Dosage: 125 Microgram, qd
     Route: 048
     Dates: start: 20050903
  8. CLOPIDOGREL [Concomitant]
     Dosage: 75 mg, qd
     Route: 048
     Dates: start: 20061212
  9. LEVOCABASTINE HYDROCHLORIDE [Concomitant]
     Dosage: 0.5 mg/ML, qd
     Route: 047
     Dates: start: 20091125
  10. BUDESONIDE [Concomitant]
     Dosage: 400 Microgram, qd
     Route: 055
     Dates: start: 20120121
  11. HYDROXYZINE [Concomitant]
     Dosage: 25 mg, qd
     Route: 048
     Dates: start: 20071211
  12. BISOPROLOL [Concomitant]
     Dosage: 7.5 mg, qd
     Route: 048
     Dates: start: 20050903
  13. OMEPRAZOLE [Concomitant]
     Dosage: 20 mg, qd
     Route: 048
     Dates: start: 20060413
  14. CANDESARTAN [Concomitant]
     Dosage: 4 mg, qd
     Route: 048
     Dates: start: 20080903
  15. HUMALOG [Concomitant]
     Dosage: 22E, qd
     Route: 058
     Dates: start: 20090131

REACTIONS (12)
  - Lip squamous cell carcinoma [Unknown]
  - Atrial fibrillation [None]
  - Syncope [None]
  - Diabetes mellitus [None]
  - Peripheral embolism [None]
  - Constipation [None]
  - Overdose [None]
  - Sick sinus syndrome [None]
  - Vertigo [None]
  - Pain in extremity [None]
  - Infection [None]
  - Myocardial infarction [None]
